FAERS Safety Report 14870622 (Version 2)
Quarter: 2018Q2

REPORT INFORMATION
  Report Type: Spontaneous
  Country: US (occurrence: US)
  Receive Date: 20180509
  Receipt Date: 20180518
  Transmission Date: 20180711
  Serious: No
  Sender: FDA-Public Use
  Company Number: US-PFIZER INC-2018121798

PATIENT
  Age: 44 Year
  Sex: Female

DRUGS (6)
  1. NEOSAR [Concomitant]
     Active Substance: CYCLOPHOSPHAMIDE
     Dosage: UNK
  2. DOCETAXEL. [Suspect]
     Active Substance: DOCETAXEL
     Indication: BREAST CANCER
     Dosage: UNK, CYCLIC (DOSE REPORTED AS 160, UNIT UNSPECIFIED EVERY THREE WEEKS FOR 6 CYCLES)
     Dates: start: 20120913, end: 20121227
  3. DOCEFREZ [Suspect]
     Active Substance: DOCETAXEL ANHYDROUS
     Indication: BREAST CANCER
     Dosage: UNK, CYCLIC (DOSE REPORTED AS 160, UNIT UNSPECIFIED EVERY THREE WEEKS FOR 6 CYCLES)
     Dates: start: 20120913, end: 20121227
  4. TAXOTERE [Suspect]
     Active Substance: DOCETAXEL
     Indication: BREAST CANCER
     Dosage: UNK, CYCLIC (DOSE REPORTED AS 160, UNIT UNSPECIFIED EVERY THREE WEEKS FOR 6 CYCLES)
     Dates: start: 20120913, end: 20121227
  5. CYTOXAN [Concomitant]
     Active Substance: CYCLOPHOSPHAMIDE
     Dosage: UNK
  6. DOCETAXEL. [Suspect]
     Active Substance: DOCETAXEL
     Indication: BREAST CANCER
     Dosage: UNK, CYCLIC (DOSE REPORTED AS 160, UNIT UNSPECIFIED EVERY THREE WEEKS FOR 6 CYCLES)
     Dates: start: 20120913, end: 20121227

REACTIONS (5)
  - Hair colour changes [Not Recovered/Not Resolved]
  - Alopecia [Not Recovered/Not Resolved]
  - Hair texture abnormal [Not Recovered/Not Resolved]
  - Madarosis [Not Recovered/Not Resolved]
  - Hair disorder [Not Recovered/Not Resolved]

NARRATIVE: CASE EVENT DATE: 201305
